FAERS Safety Report 12713169 (Version 2)
Quarter: 2016Q3

REPORT INFORMATION
  Report Type: Report from Study
  Country: US (occurrence: US)
  Receive Date: 20160902
  Receipt Date: 20160921
  Transmission Date: 20161109
  Serious: Yes (Death, Hospitalization)
  Sender: FDA-Public Use
  Company Number: US-ACTELION-A-US2016-140787

PATIENT
  Age: 81 Year
  Sex: Female

DRUGS (13)
  1. NORCO [Concomitant]
     Active Substance: ACETAMINOPHEN\HYDROCODONE BITARTRATE
     Dosage: UNK, PRN
     Dates: start: 2011
  2. METOPROLOL. [Concomitant]
     Active Substance: METOPROLOL
     Dosage: 25 MG, QD
     Dates: start: 201602
  3. METOPROLOL. [Concomitant]
     Active Substance: METOPROLOL
     Dosage: 100 UNK, UNK
  4. TOPAMAX [Concomitant]
     Active Substance: TOPIRAMATE
     Dosage: 50 MG, BID
     Dates: start: 2011
  5. ASPIRIN. [Concomitant]
     Active Substance: ASPIRIN
     Dosage: 81 MG, QD
     Dates: start: 2016
  6. ALBUTEROL HFA [Concomitant]
     Active Substance: ALBUTEROL SULFATE
     Dosage: UNK, PRN
     Route: 055
     Dates: start: 2011
  7. SILDENAFIL. [Concomitant]
     Active Substance: SILDENAFIL
     Dosage: 20 MG, TID
  8. LASIX [Concomitant]
     Active Substance: FUROSEMIDE
     Dosage: 40 MG, QD
     Dates: start: 201510
  9. COLACE [Concomitant]
     Active Substance: DOCUSATE SODIUM
     Dosage: UNK, PRN
  10. OPSUMIT [Suspect]
     Active Substance: MACITENTAN
     Indication: PULMONARY ARTERIAL HYPERTENSION
     Dosage: 10 MG, QD
     Route: 048
     Dates: start: 20160724, end: 20160820
  11. TRAMADOL. [Concomitant]
     Active Substance: TRAMADOL
     Dosage: 50 MG, PRN
     Dates: start: 2011
  12. POTASSIUM [Concomitant]
     Active Substance: POTASSIUM
     Dosage: 20 MEQ, QD
     Dates: start: 201605
  13. MULTIVITAMIN [Concomitant]
     Active Substance: VITAMINS

REACTIONS (14)
  - Non-cardiac chest pain [Fatal]
  - Condition aggravated [Fatal]
  - Hypoxia [Fatal]
  - Pericardial effusion [Unknown]
  - Pleural effusion [Fatal]
  - Pulmonary arterial hypertension [Fatal]
  - Myocardial necrosis marker increased [Unknown]
  - Dyspnoea [Fatal]
  - Nasal congestion [Unknown]
  - Acute respiratory failure [Fatal]
  - Disease progression [Fatal]
  - Cardiac failure congestive [Fatal]
  - Restrictive pulmonary disease [Fatal]
  - Headache [Unknown]

NARRATIVE: CASE EVENT DATE: 201607
